FAERS Safety Report 10025723 (Version 1)
Quarter: 2014Q1

REPORT INFORMATION
  Report Type: Spontaneous
  Country: IT (occurrence: IT)
  Receive Date: 20140320
  Receipt Date: 20140320
  Transmission Date: 20141002
  Serious: Yes (Other)
  Sender: FDA-Public Use
  Company Number: IT-ACTAVIS-2014-05078

PATIENT
  Age: 78 Year
  Sex: Female
  Weight: 97 kg

DRUGS (2)
  1. GEMBIN [Suspect]
     Indication: BILIARY NEOPLASM
     Dosage: 2000 MG, CYCLICAL
     Route: 042
     Dates: start: 20140213, end: 20140305
  2. RYTMONORM [Concomitant]
     Indication: VENTRICULAR TACHYCARDIA
     Dosage: UNK

REACTIONS (3)
  - Loss of consciousness [Recovered/Resolved]
  - Confusional state [Recovered/Resolved]
  - Hypertension [Recovered/Resolved]
